FAERS Safety Report 16100368 (Version 8)
Quarter: 2021Q1

REPORT INFORMATION
  Report Type: Spontaneous
  Country: US (occurrence: US)
  Receive Date: 20190321
  Receipt Date: 20210311
  Transmission Date: 20210419
  Serious: No
  Sender: FDA-Public Use
  Company Number: US-PFIZER INC-2018192508

PATIENT
  Age: 13 Year
  Sex: Female

DRUGS (1)
  1. GENOTROPIN [Suspect]
     Active Substance: SOMATROPIN
     Dosage: 2.8 MG, DAILY
     Dates: start: 20130613

REACTIONS (7)
  - Device mechanical issue [Unknown]
  - Wrong technique in device usage process [Unknown]
  - Arthralgia [Unknown]
  - Hyperparathyroidism [Unknown]
  - Drug dose omission by device [Unknown]
  - Swelling [Recovering/Resolving]
  - Blood calcium increased [Unknown]
